FAERS Safety Report 4846986-2 (Version None)
Quarter: 2005Q4

REPORT INFORMATION
  Report Type: 
  Country: None (occurrence: None)
  Receive Date: 20051207
  Receipt Date: 20051128
  Transmission Date: 20060501
  Serious: Yes (Hospitalization, Other)
  Sender: FDA-Public Use
  Company Number: BR-JNJFOC-20051106220

PATIENT
  Age: 24 Year
  Sex: Male

DRUGS (1)
  1. HALDOL [Suspect]
     Indication: DRUG USE FOR UNKNOWN INDICATION
     Dosage: 10 TABLETS TAKEN AT ONE TIME ON 19-NOV-2005

REACTIONS (3)
  - EXTRAPYRAMIDAL DISORDER [None]
  - OVERDOSE [None]
  - SUICIDE ATTEMPT [None]
